FAERS Safety Report 18282475 (Version 1)
Quarter: 2020Q3

REPORT INFORMATION
  Report Type: Spontaneous
  Country: US (occurrence: US)
  Receive Date: 20200918
  Receipt Date: 20200918
  Transmission Date: 20201103
  Serious: No
  Sender: FDA-Public Use
  Company Number: US-TEVA-2020-US-1828452

PATIENT
  Age: 70 Year
  Sex: Female

DRUGS (1)
  1. TRAZODONE HYDROCHLORIDE TEVA [Suspect]
     Active Substance: TRAZODONE HYDROCHLORIDE
     Indication: INSOMNIA
     Dosage: USING FOR TWENTY YEARS
     Route: 065

REACTIONS (3)
  - Palpitations [Unknown]
  - Off label use [Unknown]
  - Anxiety [Unknown]
